FAERS Safety Report 14439673 (Version 2)
Quarter: 2018Q1

REPORT INFORMATION
  Report Type: Spontaneous
  Country: RU (occurrence: RU)
  Receive Date: 20180125
  Receipt Date: 20180206
  Transmission Date: 20180509
  Serious: Yes (Hospitalization)
  Sender: FDA-Public Use
  Company Number: RU-ASTRAZENECA-2017SF29191

PATIENT
  Age: 56 Year
  Sex: Male
  Weight: 80 kg

DRUGS (4)
  1. ENALAPRIL [Suspect]
     Active Substance: ENALAPRIL
     Route: 065
  2. BRILINTA [Suspect]
     Active Substance: TICAGRELOR
     Indication: MYOCARDIAL INFARCTION
     Route: 048
     Dates: start: 20171129
  3. UNIDENTIFIED INFUSIONS [Concomitant]
  4. VITAMINS NOS [Concomitant]
     Active Substance: VITAMINS

REACTIONS (6)
  - Blood pressure decreased [Not Recovered/Not Resolved]
  - Dyspnoea exertional [Recovering/Resolving]
  - Venous thrombosis limb [Unknown]
  - Peripheral vascular disorder [Unknown]
  - Pain in extremity [Recovering/Resolving]
  - Peripheral artery thrombosis [Unknown]

NARRATIVE: CASE EVENT DATE: 20171201
